FAERS Safety Report 20127701 (Version 2)
Quarter: 2022Q1

REPORT INFORMATION
  Report Type: Spontaneous
  Country: US (occurrence: US)
  Receive Date: 20211129
  Receipt Date: 20220119
  Transmission Date: 20220423
  Serious: Yes (Other)
  Sender: FDA-Public Use
  Company Number: US-SANOFI-00868802

PATIENT
  Age: 45 Year
  Sex: Female
  Weight: 68.027 kg

DRUGS (1)
  1. TOUJEO [Suspect]
     Active Substance: INSULIN GLARGINE
     Indication: Type 1 diabetes mellitus
     Dosage: 20-22 UNITS, QD
     Route: 065
     Dates: start: 20211118, end: 20211120

REACTIONS (3)
  - Diabetes mellitus inadequate control [Unknown]
  - Drug ineffective [Unknown]
  - Blood glucose increased [Recovered/Resolved]

NARRATIVE: CASE EVENT DATE: 20211118
